FAERS Safety Report 14127831 (Version 3)
Quarter: 2018Q1

REPORT INFORMATION
  Report Type: Spontaneous
  Country: US (occurrence: US)
  Receive Date: 20171026
  Receipt Date: 20180110
  Transmission Date: 20180508
  Serious: Yes (Hospitalization)
  Sender: FDA-Public Use
  Company Number: US-BIOGEN-2017BI00351782

PATIENT
  Age: 69 Year
  Sex: Female

DRUGS (4)
  1. TECFIDERA [Suspect]
     Active Substance: DIMETHYL FUMARATE
     Dosage: MAINTENANCE DOSE
     Route: 048
     Dates: start: 201701
  2. TECFIDERA [Suspect]
     Active Substance: DIMETHYL FUMARATE
     Indication: MULTIPLE SCLEROSIS
     Dosage: STARTING DOSE
     Route: 048
     Dates: start: 20161216, end: 20161222
  3. TECFIDERA [Suspect]
     Active Substance: DIMETHYL FUMARATE
     Dosage: MAINTENANCE DOSE
     Route: 048
     Dates: start: 20161223
  4. TECFIDERA [Suspect]
     Active Substance: DIMETHYL FUMARATE
     Dosage: MAINTENANCE DOSE
     Route: 065
     Dates: start: 20170630

REACTIONS (14)
  - Musculoskeletal disorder [Unknown]
  - Drug dose omission [Recovered/Resolved]
  - Flushing [Recovered/Resolved with Sequelae]
  - Rotator cuff repair [Recovered/Resolved]
  - Temperature intolerance [Recovered/Resolved]
  - Constipation [Recovered/Resolved]
  - Limb discomfort [Unknown]
  - Pruritus [Recovered/Resolved]
  - Diarrhoea [Recovered/Resolved with Sequelae]
  - Erythema [Recovered/Resolved]
  - Gastrointestinal disorder [Recovered/Resolved]
  - Gait disturbance [Unknown]
  - Faeces soft [Recovered/Resolved]
  - Joint dislocation [Unknown]

NARRATIVE: CASE EVENT DATE: 20161215
